FAERS Safety Report 4776910-2 (Version None)
Quarter: 2005Q3

REPORT INFORMATION
  Report Type: 
  Country: None (occurrence: None)
  Receive Date: 20050922
  Receipt Date: 20050922
  Transmission Date: 20060218
  Serious: No
  Sender: FDA-Public Use
  Company Number: None

PATIENT
  Age: 59 Year
  Sex: Male
  Weight: 121.564 kg

DRUGS (2)
  1. CYTARABINE [Suspect]
     Indication: NON-HODGKIN'S LYMPHOMA
     Dosage: 2900MG   Q12H
     Dates: start: 20050621, end: 20050622
  2. CYTARABINE [Suspect]

REACTIONS (2)
  - DRUG TOXICITY [None]
  - HEMIPARESIS [None]
